FAERS Safety Report 18813689 (Version 1)
Quarter: 2021Q1

REPORT INFORMATION
  Report Type: Spontaneous
  Country: BR (occurrence: BR)
  Receive Date: 20210201
  Receipt Date: 20210201
  Transmission Date: 20210419
  Serious: Yes (Life-Threatening, Hospitalization, Other)
  Sender: FDA-Public Use
  Company Number: BR-VISTAPHARM, INC.-VER202101-000552

PATIENT
  Age: 26 Day
  Sex: Male
  Weight: 3.13 kg

DRUGS (5)
  1. AMPICILLIN [Concomitant]
     Active Substance: AMPICILLIN
     Indication: INFECTION PROPHYLAXIS
     Dosage: UNKNOWN (DAY 1 AND 3)
  2. HYDROCODONE AND ACETAMINOPHEN [Suspect]
     Active Substance: ACETAMINOPHEN\HYDROCODONE
     Indication: PYREXIA
     Dosage: 10 MG/KG/DOSE EVERY 4 HOURS FOR 3 CONSECUTIVE DAYS ?TOTAL DOSE OF APPROXIMATELY 180 MG/KG
     Route: 048
  3. VANCOMYCIN [Concomitant]
     Active Substance: VANCOMYCIN
     Indication: STAPHYLOCOCCAL INFECTION
     Dosage: UNKNOWN (DAY 20)
  4. DOBUTAMINE [Concomitant]
     Active Substance: DOBUTAMINE HYDROCHLORIDE
     Indication: PRODUCT USED FOR UNKNOWN INDICATION
     Dosage: UNKNOWN
  5. AMIKACIN. [Concomitant]
     Active Substance: AMIKACIN
     Indication: INFECTION PROPHYLAXIS
     Dosage: UNKNOWN (DAY 1 AND 3)

REACTIONS (8)
  - Irritability [Recovered/Resolved]
  - Upper gastrointestinal haemorrhage [Recovered/Resolved]
  - Overdose [Unknown]
  - Poor feeding infant [Recovered/Resolved]
  - Vomiting [Recovered/Resolved]
  - Neonatal respiratory distress [Recovered/Resolved]
  - Acute hepatic failure [Recovered/Resolved]
  - Toxicity to various agents [Recovered/Resolved]
